FAERS Safety Report 8185878-0 (Version None)
Quarter: 2012Q1

REPORT INFORMATION
  Report Type: 
  Country: None (occurrence: None)
  Receive Date: 20120305
  Receipt Date: 20120229
  Transmission Date: 20120608
  Serious: Yes (Hospitalization)
  Sender: FDA-Public Use
  Company Number: US-ROCHE-GNE299775

PATIENT
  Sex: Female
  Weight: 64.468 kg

DRUGS (8)
  1. ACETAMINOPHEN [Concomitant]
  2. VITAMIN AND MINERAL PRENATAL SUPPLEMENT W/ FOLIC ACID CAP [Concomitant]
     Indication: PREGNANCY
     Dosage: UNK
  3. SEREVENT [Concomitant]
     Indication: ASTHMA
     Dosage: UNK
  4. FLOVENT [Concomitant]
     Indication: ASTHMA
     Dosage: UNK
  5. FLAGYL [Concomitant]
     Indication: VAGINITIS BACTERIAL
  6. ZOLOFT [Concomitant]
     Indication: PRODUCT USED FOR UNKNOWN INDICATION
  7. BENADRYL [Concomitant]
     Indication: HYPERSENSITIVITY
     Dosage: UNK
  8. OMALIZUMAB [Suspect]
     Indication: ASTHMA
     Dosage: 300 MG, Q4W
     Route: 058

REACTIONS (2)
  - MATERNAL EXPOSURE DURING PREGNANCY [None]
  - GESTATIONAL HYPERTENSION [None]
